FAERS Safety Report 10231826 (Version 8)
Quarter: 2016Q3

REPORT INFORMATION
  Report Type: Report from Study
  Country: CA (occurrence: CA)
  Receive Date: 20140612
  Receipt Date: 20160811
  Transmission Date: 20161109
  Serious: Yes (Other)
  Sender: FDA-Public Use
  Company Number: CA-ROCHE-1408821

PATIENT
  Sex: Female
  Weight: 95 kg

DRUGS (17)
  1. CELEBREX [Concomitant]
     Active Substance: CELECOXIB
  2. METHOTREXATE. [Concomitant]
     Active Substance: METHOTREXATE
     Route: 048
  3. CRESTOR [Concomitant]
     Active Substance: ROSUVASTATIN CALCIUM
  4. RAMIPRIL. [Concomitant]
     Active Substance: RAMIPRIL
  5. LASIX [Concomitant]
     Active Substance: FUROSEMIDE
  6. ACTEMRA [Suspect]
     Active Substance: TOCILIZUMAB
     Indication: RHEUMATOID ARTHRITIS
     Route: 042
     Dates: start: 20110811
  7. ACTEMRA [Suspect]
     Active Substance: TOCILIZUMAB
     Route: 042
     Dates: start: 20140214
  8. ACTEMRA [Suspect]
     Active Substance: TOCILIZUMAB
     Dosage: LAST DOSE PRIOR TO CELLULITIS
     Route: 042
     Dates: start: 20141007
  9. ACTEMRA [Suspect]
     Active Substance: TOCILIZUMAB
     Route: 042
     Dates: start: 20150427
  10. FOLIC ACID. [Concomitant]
     Active Substance: FOLIC ACID
  11. ACTEMRA [Suspect]
     Active Substance: TOCILIZUMAB
     Route: 042
     Dates: start: 20110908
  12. ACTEMRA [Suspect]
     Active Substance: TOCILIZUMAB
     Indication: RHEUMATOID ARTHRITIS
     Route: 058
     Dates: start: 2015
  13. ACTEMRA [Suspect]
     Active Substance: TOCILIZUMAB
     Route: 042
     Dates: start: 20121105
  14. TIAZAC (CANADA) [Concomitant]
  15. DIGOXIN. [Concomitant]
     Active Substance: DIGOXIN
  16. ACTEMRA [Suspect]
     Active Substance: TOCILIZUMAB
     Route: 042
     Dates: start: 20150527, end: 20150625
  17. WARFARIN [Concomitant]
     Active Substance: WARFARIN

REACTIONS (6)
  - Dysphagia [Recovered/Resolved]
  - Limb mass [Not Recovered/Not Resolved]
  - Weight decreased [Unknown]
  - Lower respiratory tract infection [Recovered/Resolved]
  - Cellulitis [Unknown]
  - Sinusitis [Recovered/Resolved]

NARRATIVE: CASE EVENT DATE: 2015
